FAERS Safety Report 16250749 (Version 1)
Quarter: 2019Q2

REPORT INFORMATION
  Report Type: Report from Study
  Country: None (occurrence: US)
  Receive Date: 20190429
  Receipt Date: 20190429
  Transmission Date: 20190711
  Serious: Yes (Other)
  Sender: FDA-Public Use
  Company Number: US-ABBVIE-19S-163-2755952-00

PATIENT
  Age: 68 Year
  Sex: Female

DRUGS (1)
  1. CREON [Suspect]
     Active Substance: PANCRELIPASE AMYLASE\PANCRELIPASE LIPASE\PANCRELIPASE PROTEASE
     Indication: PRODUCT USED FOR UNKNOWN INDICATION
     Route: 048

REACTIONS (32)
  - Oophorectomy [Unknown]
  - Pain in jaw [Unknown]
  - Renal cyst [Unknown]
  - Coronary artery disease [Unknown]
  - Cognitive disorder [Unknown]
  - Bundle branch block right [Unknown]
  - Breast cancer [Unknown]
  - Calcium metabolism disorder [Unknown]
  - Anaemia [Unknown]
  - Diarrhoea [Unknown]
  - Renal cyst [Unknown]
  - Arterial stenosis [Unknown]
  - Headache [Unknown]
  - Coronary angioplasty [Unknown]
  - Gastrooesophageal reflux disease [Unknown]
  - Chronic fatigue syndrome [Unknown]
  - Essential hypertension [Unknown]
  - Irritable bowel syndrome [Unknown]
  - Nausea [Unknown]
  - Urinary retention [Unknown]
  - Chronic kidney disease [Unknown]
  - Nephrolithiasis [Unknown]
  - Osteoporosis [Unknown]
  - Parotitis [Unknown]
  - Catheterisation cardiac [Unknown]
  - Hallucination [Unknown]
  - Hyperlipidaemia [Unknown]
  - Abdominal pain [Unknown]
  - Haematuria [Unknown]
  - Oesophageal stenosis [Unknown]
  - Catheterisation cardiac [Unknown]
  - Depression [Unknown]

NARRATIVE: CASE EVENT DATE: 2008
